FAERS Safety Report 22154713 (Version 1)
Quarter: 2023Q1

REPORT INFORMATION
  Report Type: Spontaneous
  Country: US (occurrence: US)
  Receive Date: 20230330
  Receipt Date: 20230330
  Transmission Date: 20230418
  Serious: Yes (Other)
  Sender: FDA-Public Use
  Company Number: US-BRISTOL-MYERS SQUIBB COMPANY-2023-041676

PATIENT
  Age: 51 Year
  Sex: Male

DRUGS (6)
  1. VIDAZA [Suspect]
     Active Substance: AZACITIDINE
     Indication: Acute myeloid leukaemia recurrent
     Dosage: FREQ : DAYS 1-7 EVERY 4 WEEKS, VIALS
  2. ALLOPURINOL [Concomitant]
     Active Substance: ALLOPURINOL
     Indication: Product used for unknown indication
  3. ONDANSETRON [Concomitant]
     Active Substance: ONDANSETRON
     Indication: Product used for unknown indication
  4. TRAMADOL [Concomitant]
     Active Substance: TRAMADOL
     Indication: Product used for unknown indication
  5. EMLA [Concomitant]
     Active Substance: LIDOCAINE\PRILOCAINE
     Indication: Product used for unknown indication
  6. MIDOSTAURIN [Concomitant]
     Active Substance: MIDOSTAURIN
     Indication: Product used for unknown indication

REACTIONS (2)
  - Acute myeloid leukaemia [Unknown]
  - Off label use [Unknown]

NARRATIVE: CASE EVENT DATE: 20230207
